FAERS Safety Report 5933468-X (Version None)
Quarter: 2008Q4

REPORT INFORMATION
  Report Type: 
  Country: None (occurrence: None)
  Receive Date: 20081024
  Receipt Date: 20081014
  Transmission Date: 20090506
  Serious: Yes (Disabling, Other)
  Sender: FDA-Public Use
  Company Number: 035576

PATIENT
  Age: 75 Year
  Sex: Female

DRUGS (2)
  1. ALENDRONATE SODIUM [Suspect]
     Dosage: ORAL
     Route: 048
     Dates: start: 19960101, end: 20060101
  2. STEROIDS [Concomitant]

REACTIONS (7)
  - FALL [None]
  - FEMUR FRACTURE [None]
  - FRACTURE NONUNION [None]
  - IMPAIRED HEALING [None]
  - LOW TURNOVER OSTEOPATHY [None]
  - OSTEOPOROSIS POSTMENOPAUSAL [None]
  - PAIN [None]
